FAERS Safety Report 15920435 (Version 1)
Quarter: 2019Q1

REPORT INFORMATION
  Report Type: Spontaneous
  Country: ZA (occurrence: ZA)
  Receive Date: 20190205
  Receipt Date: 20190205
  Transmission Date: 20190417
  Serious: Yes (Other)
  Sender: FDA-Public Use
  Company Number: PHHY2019ZA024829

PATIENT
  Sex: Female

DRUGS (2)
  1. SANDOSTATIN LAR DEPOT [Suspect]
     Active Substance: OCTREOTIDE ACETATE
     Dosage: 30 MG, (FOR 6 CYCLES)
     Route: 065
  2. SANDOSTATIN LAR DEPOT [Suspect]
     Active Substance: OCTREOTIDE ACETATE
     Indication: NEUROENDOCRINE TUMOUR
     Dosage: 20 MG, (FOR 9 CYCLES)
     Route: 065

REACTIONS (5)
  - Diarrhoea [Unknown]
  - Malignant neoplasm progression [Unknown]
  - Flushing [Unknown]
  - Neoplasm malignant [Unknown]
  - Tumour marker increased [Unknown]
